FAERS Safety Report 9006436 (Version 2)
Quarter: 2013Q1

REPORT INFORMATION
  Report Type: Spontaneous
  Country: BR (occurrence: None)
  Receive Date: 20121227
  Receipt Date: 20121228
  Transmission Date: 20140127
  Serious: Yes (Hospitalization)
  Sender: FDA-Public Use
  Company Number: DSU-2012-09993

PATIENT
  Age: 68 Year
  Sex: Male

DRUGS (3)
  1. OLMETEC HCT (HYDROCHLOROTHIAZIDE, OLMESARTAN MEDOXOMIL) (TABLET) (HYDROCHLOROTHIAZIDE, OLMESARTAN MEDOXOMIL) [Suspect]
     Indication: HYPERTENSION
     Route: 048
     Dates: start: 20080729
  2. GLIFAGE (METFORMIN) [Concomitant]
  3. CLINFAR (SIMVASTATIN) [Concomitant]

REACTIONS (1)
  - Brain neoplasm [None]
